FAERS Safety Report 18707985 (Version 1)
Quarter: 2021Q1

REPORT INFORMATION
  Report Type: Spontaneous
  Country: US (occurrence: US)
  Receive Date: 20210106
  Receipt Date: 20210106
  Transmission Date: 20210419
  Serious: Yes (Other)
  Sender: FDA-Public Use
  Company Number: US-PFIZER INC-2021004988

PATIENT
  Age: 76 Year
  Sex: Female

DRUGS (1)
  1. ETHOSUXIMIDE. [Suspect]
     Active Substance: ETHOSUXIMIDE
     Dosage: UNK

REACTIONS (2)
  - Drug ineffective [Unknown]
  - Seizure [Unknown]
